FAERS Safety Report 15475464 (Version 3)
Quarter: 2018Q4

REPORT INFORMATION
  Report Type: Report from Study
  Country: US (occurrence: US)
  Receive Date: 20181008
  Receipt Date: 20181029
  Transmission Date: 20190205
  Serious: Yes (Hospitalization)
  Sender: FDA-Public Use
  Company Number: US-ACTELION-A-NJ2017-158456

PATIENT
  Age: 76 Year
  Sex: Female
  Weight: 74.83 kg

DRUGS (3)
  1. SILDENAFIL CITRATE. [Concomitant]
     Active Substance: SILDENAFIL CITRATE
  2. XARELTO [Concomitant]
     Active Substance: RIVAROXABAN
  3. OPSUMIT [Suspect]
     Active Substance: MACITENTAN
     Indication: PULMONARY ARTERIAL HYPERTENSION
     Dosage: 10 MG, QD
     Route: 048
     Dates: start: 20170501

REACTIONS (17)
  - Autonomic failure syndrome [Recovered/Resolved with Sequelae]
  - Dysphonia [Unknown]
  - Dyspnoea [Unknown]
  - Breast haematoma [Not Recovered/Not Resolved]
  - Medical device implantation [Recovered/Resolved with Sequelae]
  - Cough [Recovered/Resolved]
  - Arteriovenous malformation [Unknown]
  - Haemoglobin decreased [Recovered/Resolved]
  - Haematochezia [Recovered/Resolved with Sequelae]
  - Anaemia [Recovered/Resolved]
  - Contusion [Not Recovered/Not Resolved]
  - Gastrointestinal haemorrhage [Recovered/Resolved with Sequelae]
  - Device leakage [Recovered/Resolved]
  - Transfusion [Unknown]
  - Injury [Not Recovered/Not Resolved]
  - Faeces discoloured [Recovered/Resolved with Sequelae]
  - Pneumonia [Recovered/Resolved]

NARRATIVE: CASE EVENT DATE: 20170820
